FAERS Safety Report 7077011-3 (Version None)
Quarter: 2010Q4

REPORT INFORMATION
  Report Type: 
  Country: None (occurrence: None)
  Receive Date: 20101101
  Receipt Date: 20101021
  Transmission Date: 20110411
  Serious: Yes (Disabling, Other)
  Sender: FDA-Public Use
  Company Number: JP-ROCHE-691798

PATIENT
  Sex: Female
  Weight: 51 kg

DRUGS (9)
  1. VESANOID [Suspect]
     Indication: ACUTE PROMYELOCYTIC LEUKAEMIA
     Route: 048
     Dates: start: 20071221, end: 20080108
  2. VESANOID [Suspect]
     Route: 048
     Dates: start: 20080118, end: 20080119
  3. IDARUBICIN HYDROCHLORIDE [Suspect]
     Indication: ACUTE PROMYELOCYTIC LEUKAEMIA
     Route: 042
     Dates: start: 20071224, end: 20071225
  4. CYLOCIDE [Suspect]
     Indication: ACUTE PROMYELOCYTIC LEUKAEMIA
     Route: 042
     Dates: start: 20071224, end: 20071228
  5. REMINARON [Concomitant]
     Route: 042
     Dates: start: 20071221, end: 20071230
  6. GASTER D [Concomitant]
     Route: 048
     Dates: start: 20071221
  7. POLYMIXIN/NEOMYCIN EAR DROPS [Concomitant]
     Route: 048
     Dates: start: 20071221
  8. ZYLORIC [Concomitant]
     Route: 048
     Dates: start: 20071221
  9. GLYBURIDE [Concomitant]
     Route: 048
     Dates: start: 20071225

REACTIONS (2)
  - CARDIAC FAILURE [None]
  - CHEILITIS [None]
